FAERS Safety Report 5486082-7 (Version None)
Quarter: 2007Q4

REPORT INFORMATION
  Report Type: 
  Country: None (occurrence: None)
  Receive Date: 20071015
  Receipt Date: 20071004
  Transmission Date: 20080405
  Serious: Yes (Death)
  Sender: FDA-Public Use
  Company Number: FR-PFIZER INC-2007083597

PATIENT
  Sex: Male

DRUGS (1)
  1. CAVERJECT [Suspect]

REACTIONS (1)
  - DEATH [None]
